FAERS Safety Report 7451326-9 (Version None)
Quarter: 2011Q2

REPORT INFORMATION
  Report Type: 
  Country: None (occurrence: None)
  Receive Date: 20110502
  Receipt Date: 20101209
  Transmission Date: 20111010
  Serious: Yes (Other)
  Sender: FDA-Public Use
  Company Number: US-BAYER-201038778NA

PATIENT
  Age: 67 Year
  Sex: Male

DRUGS (2)
  1. CONTRAST MEDIA [Concomitant]
     Indication: COMPUTERISED TOMOGRAM ABDOMEN
     Route: 048
     Dates: start: 20101025, end: 20101025
  2. ULTRAVIST 300 [Suspect]
     Indication: COMPUTERISED TOMOGRAM ABDOMEN
     Dosage: @ A RATE OF 2 CC/ SECOND
     Route: 042
     Dates: start: 20101025, end: 20101025

REACTIONS (4)
  - ERYTHEMA [None]
  - FLUSHING [None]
  - DYSPNOEA [None]
  - URTICARIA [None]
